FAERS Safety Report 10679503 (Version 1)
Quarter: 2014Q4

REPORT INFORMATION
  Report Type: Spontaneous
  Country: US (occurrence: US)
  Receive Date: 20141229
  Receipt Date: 20141229
  Transmission Date: 20150529
  Serious: No
  Sender: FDA-Public Use
  Company Number: US-ABBVIE-14P-163-1253278-00

PATIENT
  Sex: Male

DRUGS (2)
  1. CASODEX [Concomitant]
     Active Substance: BICALUTAMIDE
     Indication: PROSTATE CANCER
     Dates: end: 201406
  2. LUPRON DEPOT [Suspect]
     Active Substance: LEUPROLIDE ACETATE
     Indication: PROSTATE CANCER
     Route: 030
     Dates: start: 201308, end: 20140611

REACTIONS (2)
  - Weight increased [Not Recovered/Not Resolved]
  - Muscle atrophy [Not Recovered/Not Resolved]
